FAERS Safety Report 18456282 (Version 1)
Quarter: 2020Q4

REPORT INFORMATION
  Report Type: Spontaneous
  Country: US (occurrence: US)
  Receive Date: 20201103
  Receipt Date: 20201103
  Transmission Date: 20210114
  Serious: No
  Sender: FDA-Public Use
  Company Number: US-BEH-2020124012

PATIENT
  Age: 9 Year
  Sex: Female

DRUGS (1)
  1. HIZENTRA [Suspect]
     Active Substance: HUMAN IMMUNOGLOBULIN G
     Indication: HYPERGAMMAGLOBULINAEMIA
     Dosage: 5 GRAM, QW (TWO DAYS PER WEEK)
     Route: 058
     Dates: start: 202005

REACTIONS (2)
  - Ill-defined disorder [Unknown]
  - Infection [Unknown]
